FAERS Safety Report 9439378 (Version 4)
Quarter: 2013Q3

REPORT INFORMATION
  Report Type: Report from Study
  Country: US (occurrence: US)
  Receive Date: 20130805
  Receipt Date: 20130819
  Transmission Date: 20140515
  Serious: Yes (Hospitalization)
  Sender: FDA-Public Use
  Company Number: US-009507513-1307USA017420

PATIENT
  Age: 57 Year
  Sex: Female

DRUGS (5)
  1. VICTRELIS [Suspect]
     Indication: CHRONIC HEPATITIS C
     Dosage: 2400 MG DAILY
     Route: 065
     Dates: start: 20130108, end: 20130430
  2. REBETOL [Suspect]
     Indication: CHRONIC HEPATITIS C
     Dosage: 400 MG DAILY
     Route: 065
     Dates: start: 20121212, end: 20130430
  3. PEGINTERFERON ALFA-2A [Suspect]
     Indication: CHRONIC HEPATITIS C
     Dosage: 90 MICROGRAM, UNK
     Route: 065
     Dates: start: 20121212, end: 20130430
  4. NEUPOGEN [Concomitant]
  5. EPOETIN ALFA [Concomitant]

REACTIONS (3)
  - Eye pruritus [Not Recovered/Not Resolved]
  - Oedema peripheral [Not Recovered/Not Resolved]
  - Rash pruritic [Recovered/Resolved]
